FAERS Safety Report 26044993 (Version 1)
Quarter: 2025Q4

REPORT INFORMATION
  Report Type: Spontaneous
  Country: CN (occurrence: CN)
  Receive Date: 20251114
  Receipt Date: 20251114
  Transmission Date: 20260117
  Serious: Yes (Hospitalization, Other)
  Sender: BAXTER
  Company Number: None

PATIENT
  Age: 59 Year
  Sex: Female
  Weight: 43.5 kg

DRUGS (4)
  1. CYCLOPHOSPHAMIDE [Suspect]
     Active Substance: CYCLOPHOSPHAMIDE
     Indication: Breast cancer female
     Dosage: 0.8 G, QD
     Route: 041
     Dates: start: 20251017, end: 20251017
  2. SODIUM CHLORIDE [Suspect]
     Active Substance: SODIUM CHLORIDE
     Dosage: 100 ML, QD (CYCLOPHOSPHAMIDE + 0.9% SODIUM CHLORIDE)
     Route: 041
     Dates: start: 20251017, end: 20251017
  3. SODIUM CHLORIDE [Suspect]
     Active Substance: SODIUM CHLORIDE
     Dosage: 250 ML, QD (DOCETAXEL + 0.9% SODIUM CHLORIDE)
     Route: 041
     Dates: start: 20251017, end: 20251017
  4. DOCETAXEL [Suspect]
     Active Substance: DOCETAXEL
     Indication: Breast cancer female
     Dosage: 100 MG, QD
     Route: 041
     Dates: start: 20251017, end: 20251017

REACTIONS (3)
  - Platelet count decreased [Recovering/Resolving]
  - Myelosuppression [Recovering/Resolving]
  - Pyrexia [Recovering/Resolving]

NARRATIVE: CASE EVENT DATE: 20251021
